FAERS Safety Report 7482150-9 (Version None)
Quarter: 2011Q2

REPORT INFORMATION
  Report Type: 
  Country: None (occurrence: None)
  Receive Date: 20110516
  Receipt Date: 20110509
  Transmission Date: 20111010
  Serious: No
  Sender: FDA-Public Use
  Company Number: US-PFIZER INC-2007013812

PATIENT
  Sex: Female
  Weight: 73 kg

DRUGS (3)
  1. CHANTIX [Suspect]
     Indication: SMOKING CESSATION THERAPY
     Dosage: 1MG 2X/DAY
     Dates: start: 20070101
  2. LIPITOR [Concomitant]
  3. CHANTIX [Suspect]
     Dosage: UNK

REACTIONS (3)
  - GASTRIC DISORDER [None]
  - NAUSEA [None]
  - ABDOMINAL PAIN UPPER [None]
